FAERS Safety Report 5858775-0 (Version None)
Quarter: 2008Q3

REPORT INFORMATION
  Report Type: 
  Country: None (occurrence: None)
  Receive Date: 20080825
  Receipt Date: 20080812
  Transmission Date: 20090109
  Serious: Yes (Other)
  Sender: FDA-Public Use
  Company Number: 031747

PATIENT
  Age: 24 Year
  Sex: Female
  Weight: 63.9 kg

DRUGS (2)
  1. PLAN B [Suspect]
     Indication: CONTRACEPTION
     Dosage: 1 TABLET, Q12HR,ORAL; 2 TABLET, SINGLE, ORAL
     Route: 048
     Dates: start: 20080601, end: 20080601
  2. PLAN B [Suspect]
     Indication: CONTRACEPTION
     Dosage: 1 TABLET, Q12HR,ORAL; 2 TABLET, SINGLE, ORAL
     Route: 048
     Dates: start: 20080731, end: 20080731

REACTIONS (4)
  - DYSMENORRHOEA [None]
  - MENORRHAGIA [None]
  - PELVIC NEOPLASM [None]
  - PELVIC PAIN [None]
